FAERS Safety Report 23644466 (Version 1)
Quarter: 2024Q1

REPORT INFORMATION
  Report Type: Spontaneous
  Country: JP (occurrence: None)
  Receive Date: 20240318
  Receipt Date: 20240318
  Transmission Date: 20240410
  Serious: Yes (Hospitalization, Other)
  Sender: FDA-Public Use
  Company Number: 2024A064501

PATIENT
  Age: 49 Year
  Sex: Female

DRUGS (1)
  1. DURVALUMAB\TREMELIMUMAB [Suspect]
     Active Substance: DURVALUMAB\TREMELIMUMAB
     Route: 042

REACTIONS (5)
  - Metastases to bone [Unknown]
  - Hepatic lesion [Unknown]
  - Pleural effusion [Unknown]
  - Ascites [Unknown]
  - Rash maculo-papular [Recovering/Resolving]
